FAERS Safety Report 18972678 (Version 1)
Quarter: 2021Q1

REPORT INFORMATION
  Report Type: Report from Study
  Country: GB (occurrence: GB)
  Receive Date: 20210305
  Receipt Date: 20210305
  Transmission Date: 20210420
  Serious: Yes (Other)
  Sender: FDA-Public Use
  Company Number: GB-TEVA-2021-GB-1887969

PATIENT
  Sex: Female

DRUGS (1)
  1. AJOVY [Suspect]
     Active Substance: FREMANEZUMAB-VFRM
     Route: 065

REACTIONS (6)
  - Headache [Unknown]
  - Immune system disorder [Unknown]
  - Abnormal dreams [Unknown]
  - Depressed mood [Unknown]
  - Autoimmune disorder [Unknown]
  - Emotional disorder [Unknown]
